FAERS Safety Report 9769177 (Version 2)
Quarter: 2014Q1

REPORT INFORMATION
  Report Type: Report from Study
  Country: US (occurrence: US)
  Receive Date: 20131218
  Receipt Date: 20140129
  Transmission Date: 20141002
  Serious: Yes (Other)
  Sender: FDA-Public Use
  Company Number: US-ROCHE-1320274

PATIENT
  Sex: Female

DRUGS (3)
  1. LUCENTIS [Suspect]
     Indication: AGE-RELATED MACULAR DEGENERATION
     Dosage: RIGHT EYE
     Route: 050
     Dates: start: 201311
  2. ALPHAGAN [Concomitant]
     Route: 065
  3. PROAIR (UNITED STATES) [Concomitant]
     Indication: EMPHYSEMA

REACTIONS (7)
  - Blindness [Unknown]
  - Drug ineffective [Unknown]
  - Foreign body sensation in eyes [Unknown]
  - Ocular discomfort [Unknown]
  - Vision blurred [Unknown]
  - Dyspnoea [Unknown]
  - Eye irritation [Recovered/Resolved]
